FAERS Safety Report 10283151 (Version 1)
Quarter: 2014Q3

REPORT INFORMATION
  Report Type: Spontaneous
  Country: FR (occurrence: FR)
  Receive Date: 20140708
  Receipt Date: 20140708
  Transmission Date: 20150326
  Serious: Yes (Hospitalization)
  Sender: FDA-Public Use
  Company Number: FR-ACCORD-024599

PATIENT
  Age: 64 Year
  Sex: Female

DRUGS (3)
  1. HERCEPTIN [Suspect]
     Active Substance: TRASTUZUMAB
     Indication: HER-2 POSITIVE BREAST CANCER
     Dosage: 335 MG ON 04-MAR-2014 AND 465 MG PER CYCLE FROM 10-FEB-2014 TO 04-MAR-2014.
     Route: 065
     Dates: start: 20140210, end: 20140304
  2. PERJETA [Suspect]
     Active Substance: PERTUZUMAB
     Indication: HER-2 POSITIVE BREAST CANCER
     Dosage: 420 MG ON 04-MAR-2014 AND 840 MG PER CYCLE FROM 10-FEB-2014 TO 04-MAR-2014
     Route: 042
     Dates: start: 20140210, end: 20140304
  3. DOCETAXEL ACCORD [Suspect]
     Active Substance: DOCETAXEL
     Indication: HER-2 POSITIVE BREAST CANCER
     Dosage: 119 MG ON 04-MAR-2014 AND 61 MG PER CYCLE FROM 10-FEB-2014 TO 04-MAR-2014.
     Route: 042
     Dates: start: 20140210, end: 20140304

REACTIONS (4)
  - Tachycardia [Unknown]
  - Clostridium difficile colitis [Unknown]
  - Hypotension [Unknown]
  - Agranulocytosis [Recovered/Resolved]

NARRATIVE: CASE EVENT DATE: 20140309
